FAERS Safety Report 17003340 (Version 2)
Quarter: 2019Q4

REPORT INFORMATION
  Report Type: Spontaneous
  Country: DE (occurrence: DE)
  Receive Date: 20191107
  Receipt Date: 20191211
  Transmission Date: 20200122
  Serious: Yes (Other)
  Sender: FDA-Public Use
  Company Number: DE-TEVA-2019-DE-1131680

PATIENT
  Age: 39 Year
  Sex: Female
  Weight: 54 kg

DRUGS (4)
  1. MIRTAZAPIN [Suspect]
     Active Substance: MIRTAZAPINE
     Dosage: 6 WEEKS; BEGINNING OF SEPTEMBER TO MID-OCTOBER 2019
     Dates: start: 201909, end: 201910
  2. MIRTAZAPIN [Suspect]
     Active Substance: MIRTAZAPINE
     Indication: SLEEP DISORDER
     Dosage: 8 WEEKS; BEGINNING OF AUGUST TO BEGINNING OF SEPTEMBER 2019
     Route: 048
     Dates: start: 201906, end: 201909
  3. MIRTAZAPIN [Suspect]
     Active Substance: MIRTAZAPINE
     Indication: DEPRESSION
     Dosage: 8 WEEKS; END OF MAY TO END OF JULY 2019
     Route: 048
     Dates: start: 201905, end: 201907
  4. MIRTAZAPIN [Suspect]
     Active Substance: MIRTAZAPINE
     Dosage: 2 WEEKS; MID-OCTOBER TO END OF OCTOBER 2019 1 MG
     Route: 065

REACTIONS (9)
  - Suicidal ideation [Unknown]
  - Headache [Unknown]
  - Withdrawal syndrome [Recovering/Resolving]
  - Drug withdrawal convulsions [Recovering/Resolving]
  - Anxiety [Unknown]
  - Affect lability [Unknown]
  - Depression [Recovered/Resolved]
  - Visual impairment [Unknown]
  - Restlessness [Unknown]

NARRATIVE: CASE EVENT DATE: 201910
